FAERS Safety Report 7824620-7 (Version None)
Quarter: 2011Q4

REPORT INFORMATION
  Report Type: 
  Country: None (occurrence: None)
  Receive Date: 20111019
  Receipt Date: 20111005
  Transmission Date: 20120403
  Serious: Yes (Other)
  Sender: FDA-Public Use
  Company Number: US-BAYER-2011-048292

PATIENT
  Age: 31 Year
  Sex: Female
  Weight: 102.95 kg

DRUGS (4)
  1. MULTI-VITAMINS [Concomitant]
     Dosage: UNK UNK, QD
     Route: 048
     Dates: start: 20070101, end: 20100101
  2. FEMCON FE [Concomitant]
     Dosage: UNK UNK, QD
  3. YASMIN [Suspect]
     Indication: MENSTRUATION IRREGULAR
     Dosage: UNK
     Dates: start: 20030101, end: 20090101
  4. YAZ [Suspect]
     Indication: MENSTRUATION IRREGULAR
     Dosage: UNK
     Dates: start: 20030101, end: 20090101

REACTIONS (3)
  - PAIN [None]
  - GALLBLADDER OPERATION [None]
  - CHOLECYSTITIS CHRONIC [None]
